FAERS Safety Report 20569885 (Version 1)
Quarter: 2022Q1

REPORT INFORMATION
  Report Type: Spontaneous
  Country: US (occurrence: US)
  Receive Date: 20220309
  Receipt Date: 20220309
  Transmission Date: 20220423
  Serious: Yes (Death)
  Sender: FDA-Public Use
  Company Number: US-BEIGENE, LTD-BGN-2022-001769

PATIENT

DRUGS (2)
  1. BRUKINSA [Suspect]
     Active Substance: ZANUBRUTINIB
     Indication: Follicular lymphoma
     Dosage: 800 MILLIGRAM, QD
     Route: 048
     Dates: start: 20210726, end: 20220105
  2. UMBRALISIB [Concomitant]
     Active Substance: UMBRALISIB
     Dosage: UNK
     Dates: start: 20210726

REACTIONS (2)
  - Death [Fatal]
  - Product use complaint [Unknown]

NARRATIVE: CASE EVENT DATE: 20220105
